FAERS Safety Report 4891766-5 (Version None)
Quarter: 2005Q4

REPORT INFORMATION
  Report Type: 
  Country: None (occurrence: None)
  Receive Date: 20051220
  Receipt Date: 20051004
  Transmission Date: 20060501
  Serious: Yes (Other)
  Sender: FDA-Public Use
  Company Number: 420176

PATIENT
  Sex: Female

DRUGS (1)
  1. BONIVA [Suspect]
     Indication: OSTEOPOROSIS
     Dosage: 150 MG ORAL
     Route: 048
     Dates: start: 20050801, end: 20051001

REACTIONS (3)
  - GROIN PAIN [None]
  - PRURITUS [None]
  - URINE ODOUR ABNORMAL [None]
